FAERS Safety Report 4280011-X (Version None)
Quarter: 2004Q1

REPORT INFORMATION
  Report Type: 
  Country: None (occurrence: None)
  Receive Date: 20040121
  Receipt Date: 20040115
  Transmission Date: 20041129
  Serious: Yes (Other)
  Sender: FDA-Public Use
  Company Number: GB-JNJFOC-20040102971

PATIENT
  Age: 27 Year
  Sex: Male

DRUGS (2)
  1. TOPIRAMATE [Suspect]
     Indication: EPILEPSY
     Dosage: 300 MG, 2 IN 1 DAY, ORAL
     Route: 048
  2. KEPPRA [Suspect]
     Indication: EPILEPSY
     Dosage: 1000 MG, 2 IN 1 DAY, ORAL
     Route: 048
     Dates: start: 20030701

REACTIONS (3)
  - DRUG INTERACTION [None]
  - SPEECH DISORDER [None]
  - WEIGHT DECREASED [None]
